FAERS Safety Report 7068777-7 (Version None)
Quarter: 2010Q4

REPORT INFORMATION
  Report Type: 
  Country: None (occurrence: None)
  Receive Date: 20101027
  Receipt Date: 20101027
  Transmission Date: 20110411
  Serious: Yes (Other)
  Sender: FDA-Public Use
  Company Number: None

PATIENT
  Age: 10 Year
  Sex: Male
  Weight: 32.659 kg

DRUGS (1)
  1. CONCERTA [Suspect]
     Indication: ATTENTION DEFICIT/HYPERACTIVITY DISORDER
     Dosage: 18MG DAILY PO
     Route: 048
     Dates: start: 20100105, end: 20100623

REACTIONS (4)
  - BLOOD PRESSURE INCREASED [None]
  - DECREASED APPETITE [None]
  - INSOMNIA [None]
  - TIC [None]
